FAERS Safety Report 12595712 (Version 2)
Quarter: 2016Q3

REPORT INFORMATION
  Report Type: Spontaneous
  Country: JP (occurrence: JP)
  Receive Date: 20160727
  Receipt Date: 20160817
  Transmission Date: 20161109
  Serious: Yes (Death, Other)
  Sender: FDA-Public Use
  Company Number: JP-ROCHE-1802492

PATIENT
  Age: 69 Year
  Sex: Female

DRUGS (2)
  1. IRINOTECAN HYDROCHLORIDE. [Suspect]
     Active Substance: IRINOTECAN HYDROCHLORIDE
     Indication: OVARIAN CANCER
     Dosage: DOSAGE IS UNCERTAIN.
     Route: 041
  2. AVASTIN [Suspect]
     Active Substance: BEVACIZUMAB
     Indication: OVARIAN CANCER
     Dosage: ADMINISTERING ONLY ONCE
     Route: 041
     Dates: start: 20150115, end: 20150115

REACTIONS (4)
  - Proteinuria [Recovering/Resolving]
  - Renal impairment [Recovering/Resolving]
  - Oedema [Recovered/Resolved]
  - Ovarian cancer [Fatal]

NARRATIVE: CASE EVENT DATE: 201607
